FAERS Safety Report 4506717-2 (Version None)
Quarter: 2004Q4

REPORT INFORMATION
  Report Type: 
  Country: None (occurrence: None)
  Receive Date: 20041117
  Receipt Date: 20041103
  Transmission Date: 20050328
  Serious: Yes (Other)
  Sender: FDA-Public Use
  Company Number: 200452

PATIENT
  Age: 47 Year
  Sex: Female

DRUGS (7)
  1. AVONEX [Suspect]
     Indication: MULTIPLE SCLEROSIS
     Dosage: 30 MCG QW IM
     Route: 030
     Dates: start: 20021203
  2. ZOLOFT [Concomitant]
  3. DEXEDRINE [Concomitant]
  4. DIAZEPAM [Concomitant]
  5. TIZANIDINE [Concomitant]
  6. LIPITOR [Concomitant]
  7. TOPROL-XL [Concomitant]

REACTIONS (1)
  - MALIGNANT MELANOMA [None]
